FAERS Safety Report 10907152 (Version 1)
Quarter: 2015Q1

REPORT INFORMATION
  Report Type: Spontaneous
  Country: US (occurrence: None)
  Receive Date: 20150309
  Receipt Date: 20150309
  Transmission Date: 20150721
  Serious: No
  Sender: FDA-Public Use
  Company Number: 1210513-2015-00043

PATIENT
  Sex: Female

DRUGS (2)
  1. SHEFFIELD TRIPLE ANTIBIOTIC [Suspect]
     Active Substance: BACITRACIN ZINC\NEOMYCIN SULFATE\POLYMYXIN B SULFATE
     Indication: THERAPEUTIC SKIN CARE TOPICAL
     Dosage: 060
     Route: 061
  2. SHEFFIELD TRIPLE ANTIBIOTIC [Suspect]
     Active Substance: BACITRACIN ZINC\NEOMYCIN SULFATE\POLYMYXIN B SULFATE
     Dosage: 060
     Route: 061

REACTIONS (4)
  - Application site swelling [None]
  - Facial pain [None]
  - Application site pain [None]
  - Swelling face [None]

NARRATIVE: CASE EVENT DATE: 20120309
